FAERS Safety Report 7443450-1 (Version None)
Quarter: 2011Q2

REPORT INFORMATION
  Report Type: 
  Country: None (occurrence: None)
  Receive Date: 20110428
  Receipt Date: 20110422
  Transmission Date: 20111010
  Serious: Yes (Hospitalization)
  Sender: FDA-Public Use
  Company Number: Z0004343E

PATIENT
  Age: 59 Year
  Sex: Female

DRUGS (1)
  1. OFATUMUMAB [Suspect]
     Route: 042
     Dates: start: 20090922

REACTIONS (1)
  - EPISTAXIS [None]
